FAERS Safety Report 18957612 (Version 1)
Quarter: 2021Q1

REPORT INFORMATION
  Report Type: Spontaneous
  Country: US (occurrence: US)
  Receive Date: 20210301
  Receipt Date: 20210301
  Transmission Date: 20210420
  Serious: Yes (Hospitalization)
  Sender: FDA-Public Use
  Company Number: None

PATIENT
  Age: 6 Year
  Sex: Female

DRUGS (7)
  1. PULMOZYME [Concomitant]
     Active Substance: DORNASE ALFA
  2. LEVAL [Concomitant]
  3. ALBUTEROL. [Concomitant]
     Active Substance: ALBUTEROL
  4. KITABIS PAK [Suspect]
     Active Substance: TOBRAMYCIN
     Indication: CYSTIC FIBROSIS
     Dosage: ?          OTHER DOSE:300/5 MG/ML;?
     Route: 055
     Dates: start: 20190919
  5. SODIUM CHLORIDE. [Concomitant]
     Active Substance: SODIUM CHLORIDE
  6. FAMOTIDINE. [Concomitant]
     Active Substance: FAMOTIDINE
  7. FLOVENT [Concomitant]
     Active Substance: FLUTICASONE PROPIONATE

REACTIONS (2)
  - Mechanical ventilation [None]
  - Diarrhoea [None]

NARRATIVE: CASE EVENT DATE: 20210120
